FAERS Safety Report 4919635-2 (Version None)
Quarter: 2006Q1

REPORT INFORMATION
  Report Type: 
  Country: None (occurrence: None)
  Receive Date: 20060216
  Receipt Date: 20060206
  Transmission Date: 20060701
  Serious: Yes (Death, Congenital Anomaly)
  Sender: FDA-Public Use
  Company Number: 2006-138268-NL

PATIENT

DRUGS (4)
  1. GONADOTROPIN (PUREGON) [Suspect]
     Dosage: DF
  2. GONADOTROPHIN (HUMEGON) [Suspect]
     Dosage: DF
  3. CHORIONIC GONADOTROPIN [Suspect]
     Dosage: DF
  4. CLOMIPHENE [Suspect]
     Dosage: DF

REACTIONS (11)
  - DEPRESSED LEVEL OF CONSCIOUSNESS [None]
  - DISSEMINATED INTRAVASCULAR COAGULATION [None]
  - DRUG EXPOSURE DURING PREGNANCY [None]
  - GLIOSARCOMA [None]
  - HAEMORRHAGE [None]
  - HYPOTONIA [None]
  - INTRACRANIAL PRESSURE INCREASED [None]
  - LETHARGY [None]
  - MICROCEPHALY [None]
  - NERVOUS SYSTEM DISORDER [None]
  - POST PROCEDURAL COMPLICATION [None]
